FAERS Safety Report 15016394 (Version 1)
Quarter: 2018Q2

REPORT INFORMATION
  Report Type: Spontaneous
  Country: US (occurrence: US)
  Receive Date: 20180523
  Receipt Date: 20180523
  Transmission Date: 20180711
  Serious: Yes (Hospitalization)
  Sender: FDA-Public Use
  Company Number: None

PATIENT
  Age: 86 Year
  Sex: Male

DRUGS (11)
  1. OMPRAZOLE [Concomitant]
     Active Substance: OMEPRAZOLE
  2. ESCITALOPRAM [Concomitant]
     Active Substance: ESCITALOPRAM OXALATE
  3. CENTRUM [Suspect]
     Active Substance: VITAMINS
  4. MEGA MULTIVI [Concomitant]
  5. METFORMIN [Concomitant]
     Active Substance: METFORMIN HYDROCHLORIDE
  6. VINCRISTINE SDV [Suspect]
     Active Substance: VINCRISTINE SULFATE
     Dosage: INFUSION
  7. SULFAMETHOX [Concomitant]
  8. CYCLOPHOSPHAMIDE 1GM SDV [Suspect]
     Active Substance: CYCLOPHOSPHAMIDE
     Indication: NEOPLASM MALIGNANT
     Dosage: INFUSION
  9. FREESTYLE [Concomitant]
  10. AMOXICILLIN. [Concomitant]
     Active Substance: AMOXICILLIN
  11. DOCUSATE SOD [Concomitant]

REACTIONS (1)
  - Hospitalisation [None]
